FAERS Safety Report 6172438-6 (Version None)
Quarter: 2009Q2

REPORT INFORMATION
  Report Type: 
  Country: None (occurrence: None)
  Receive Date: 20090429
  Receipt Date: 20090420
  Transmission Date: 20091009
  Serious: Yes (Hospitalization)
  Sender: FDA-Public Use
  Company Number: US-SANOFI-SYNTHELABO-A03200901713

PATIENT
  Sex: Male

DRUGS (4)
  1. METOPROLOL TARTRATE [Concomitant]
     Indication: DRUG USE FOR UNKNOWN INDICATION
     Dosage: UNK
     Route: 065
  2. ASPIRIN [Concomitant]
     Indication: DRUG USE FOR UNKNOWN INDICATION
     Dosage: UNK
     Route: 065
  3. CAPECITABINE [Suspect]
     Indication: COLON CANCER
     Dosage: 3000 MG DAILY (1500MG AT AM AND 1500MG AT PM)
     Route: 048
     Dates: start: 20090323, end: 20090323
  4. ELOXATIN [Suspect]
     Indication: DRUG USE FOR UNKNOWN INDICATION
     Route: 042
     Dates: start: 20090323, end: 20090323

REACTIONS (1)
  - MYOCARDIAL INFARCTION [None]
